FAERS Safety Report 24390002 (Version 2)
Quarter: 2024Q4

REPORT INFORMATION
  Report Type: Spontaneous
  Country: US (occurrence: US)
  Receive Date: 20241003
  Receipt Date: 20241015
  Transmission Date: 20250114
  Serious: Yes (Hospitalization)
  Sender: ROCHE
  Company Number: US-ROCHE-10000093462

PATIENT
  Age: 76 Year
  Sex: Female

DRUGS (2)
  1. XOLAIR PFS [Suspect]
     Active Substance: OMALIZUMAB
     Indication: Asthma
     Route: 058
     Dates: start: 202201
  2. XOLAIR PFS [Suspect]
     Active Substance: OMALIZUMAB
     Indication: Bronchitis

REACTIONS (1)
  - Cerebrovascular accident [Unknown]
